FAERS Safety Report 15112494 (Version 1)
Quarter: 2018Q3

REPORT INFORMATION
  Report Type: Spontaneous
  Country: US (occurrence: US)
  Receive Date: 20180705
  Receipt Date: 20180705
  Transmission Date: 20181010
  Serious: No
  Sender: FDA-Public Use
  Company Number: PHEH2018US027650

PATIENT
  Sex: Male

DRUGS (1)
  1. AFINITOR [Suspect]
     Active Substance: EVEROLIMUS
     Indication: BENIGN SMALL INTESTINAL NEOPLASM
     Route: 065

REACTIONS (2)
  - Nausea [Unknown]
  - Influenza like illness [Unknown]
